FAERS Safety Report 5654062-4 (Version None)
Quarter: 2008Q1

REPORT INFORMATION
  Report Type: 
  Country: None (occurrence: None)
  Receive Date: 20080206
  Receipt Date: 20070717
  Transmission Date: 20080703
  Serious: Yes (Other)
  Sender: FDA-Public Use
  Company Number: US200704005753

PATIENT
  Age: 75 Year
  Sex: Female

DRUGS (3)
  1. EVISTA [Suspect]
     Indication: OSTEOPOROSIS
     Dosage: 60 MG, ORAL
     Route: 048
     Dates: start: 20070101, end: 20070101
  2. EVISTA [Suspect]
     Indication: OSTEOPOROSIS
     Dosage: 60 MG, ORAL
     Route: 048
     Dates: start: 20070301
  3. COUMADIN (WARFARRIN SODIUM) [Concomitant]

REACTIONS (4)
  - CHROMATURIA [None]
  - DRUG INTERACTION [None]
  - INTERNATIONAL NORMALISED RATIO DECREASED [None]
  - URINE ODOUR ABNORMAL [None]
